FAERS Safety Report 22522212 (Version 3)
Quarter: 2024Q1

REPORT INFORMATION
  Report Type: Report from Study
  Country: DO (occurrence: DO)
  Receive Date: 20230605
  Receipt Date: 20240311
  Transmission Date: 20240410
  Serious: Yes (Life-Threatening, Other)
  Sender: FDA-Public Use
  Company Number: DO-002147023-NVSC2021DO228530

PATIENT
  Age: 48 Year
  Sex: Female

DRUGS (6)
  1. KISQALI [Suspect]
     Active Substance: RIBOCICLIB
     Indication: Breast cancer
     Dosage: 600 MG, QD
     Route: 048
     Dates: start: 20201111
  2. KISQALI [Suspect]
     Active Substance: RIBOCICLIB
     Dosage: 600 MG, QD (BY MOUTH)
     Route: 048
     Dates: start: 20201119
  3. KISQALI [Suspect]
     Active Substance: RIBOCICLIB
     Dosage: 400 MG, QD
     Route: 065
  4. KISQALI [Suspect]
     Active Substance: RIBOCICLIB
     Dosage: 600 MG, QD/ BY MOUTH
     Route: 048
     Dates: start: 20210713
  5. FEMARA [Suspect]
     Active Substance: LETROZOLE
     Indication: Product used for unknown indication
     Dosage: UNK
     Route: 065
  6. PROZOLADEX [Concomitant]
     Indication: Product used for unknown indication
     Dosage: UNK
     Route: 065

REACTIONS (29)
  - White blood cell count decreased [Unknown]
  - Nodule [Unknown]
  - Breast mass [Recovering/Resolving]
  - Pulmonary mass [Unknown]
  - Pulmonary pain [Unknown]
  - Pain in extremity [Unknown]
  - Tachycardia [Unknown]
  - Amenorrhoea [Unknown]
  - Hypersensitivity [Unknown]
  - Skin discolouration [Unknown]
  - Blood pressure increased [Unknown]
  - Red blood cell count abnormal [Unknown]
  - Dysstasia [Unknown]
  - Condition aggravated [Unknown]
  - Skin irritation [Unknown]
  - Cardiovascular disorder [Unknown]
  - Pain of skin [Unknown]
  - Pain [Unknown]
  - Nodule [Recovered/Resolved]
  - Sensitive skin [Unknown]
  - Feeling hot [Unknown]
  - Breast pain [Unknown]
  - Chest pain [Unknown]
  - Vomiting [Unknown]
  - Dizziness [Unknown]
  - Pruritus [Unknown]
  - Nausea [Unknown]
  - Dry skin [Unknown]
  - Drug ineffective [Unknown]

NARRATIVE: CASE EVENT DATE: 20230528
